FAERS Safety Report 7930283-2 (Version None)
Quarter: 2011Q4

REPORT INFORMATION
  Report Type: 
  Country: None (occurrence: None)
  Receive Date: 20111121
  Receipt Date: 20111111
  Transmission Date: 20120403
  Serious: Yes (Death, Hospitalization)
  Sender: FDA-Public Use
  Company Number: US-JNJFOC-20111105494

PATIENT
  Sex: Female
  Weight: 63.5 kg

DRUGS (19)
  1. NEURONTIN [Concomitant]
     Route: 048
  2. ZOCOR [Concomitant]
     Route: 048
  3. DIPROLENE [Concomitant]
     Dosage: 0.05%OINTMENT
     Route: 061
  4. ROXICODONE [Concomitant]
     Route: 048
  5. VASOTEC [Concomitant]
     Route: 048
  6. XANAX [Concomitant]
     Route: 048
  7. METFORMIN HCL [Concomitant]
     Route: 048
  8. VOLTAREN [Concomitant]
     Route: 048
  9. LASIX [Concomitant]
     Route: 048
  10. REMICADE [Suspect]
     Indication: PSORIATIC ARTHROPATHY
     Route: 042
     Dates: start: 20090101
  11. ZOFRAN [Concomitant]
     Route: 048
  12. ZYRTEC [Concomitant]
     Route: 048
  13. OPANA [Concomitant]
     Route: 048
  14. METHOTREXATE [Concomitant]
     Route: 048
  15. CALCITONIN SALMON [Concomitant]
     Dosage: 0.09ML SOLUTION BY NASAL INHALATION
     Route: 055
  16. FLONASE [Concomitant]
     Dosage: 50MCC/SOLUTION/U/ONE SPRAY 2  TIMES A DAY IN EACH  NOSTRIL/NASAL INHALATION
     Route: 055
  17. FOLIC ACID [Concomitant]
     Route: 048
  18. NIASPAN [Concomitant]
     Route: 048
  19. OMEPRAZOLE [Concomitant]
     Route: 048

REACTIONS (2)
  - ADVERSE EVENT [None]
  - PNEUMONIA [None]
